FAERS Safety Report 20181988 (Version 2)
Quarter: 2022Q3

REPORT INFORMATION
  Report Type: Report from Study
  Country: US (occurrence: US)
  Receive Date: 20211214
  Receipt Date: 20220714
  Transmission Date: 20221027
  Serious: Yes (Other)
  Sender: FDA-Public Use
  Company Number: US-BoehringerIngelheim-2021-BI-142596

PATIENT
  Age: 13 Year
  Sex: Female
  Weight: 52.5 kg

DRUGS (2)
  1. NINTEDANIB [Suspect]
     Active Substance: NINTEDANIB
     Indication: Interstitial lung disease
     Dosage: 200MG/DAY
     Route: 048
     Dates: start: 20210419, end: 20210929
  2. NINTEDANIB [Suspect]
     Active Substance: NINTEDANIB
     Indication: Interstitial lung disease
     Route: 048
     Dates: start: 20210930, end: 20220314

REACTIONS (1)
  - Tooth development disorder [Not Recovered/Not Resolved]

NARRATIVE: CASE EVENT DATE: 20211004
